FAERS Safety Report 9272853 (Version 2)
Quarter: 2013Q2

REPORT INFORMATION
  Report Type: Report from Study
  Country: US (occurrence: US)
  Receive Date: 20130506
  Receipt Date: 20130626
  Transmission Date: 20140414
  Serious: Yes (Hospitalization, Other)
  Sender: FDA-Public Use
  Company Number: US-ALEXION-A201300111

PATIENT
  Age: 58 Year
  Sex: Female
  Weight: 52.2 kg

DRUGS (17)
  1. SOLIRIS 300MG [Suspect]
     Indication: PAROXYSMAL NOCTURNAL HAEMOGLOBINURIA
     Dosage: 600 MG, QW
     Route: 042
     Dates: start: 20100208, end: 20100308
  2. SOLIRIS 300MG [Suspect]
     Dosage: 900 MG, Q2W
     Route: 042
     Dates: start: 20100308
  3. SOLIRIS 300MG [Suspect]
     Dosage: 1200 MG, Q2W
     Route: 042
     Dates: start: 20130429
  4. CIPROFLOXACIN [Concomitant]
     Indication: PRODUCT USED FOR UNKNOWN INDICATION
     Dosage: 400 MG, BID
  5. CALCIUM + VITAMIN D [Concomitant]
     Indication: PRODUCT USED FOR UNKNOWN INDICATION
     Dosage: 1 DF, BID 600/400 1 TABLET
     Route: 048
  6. FOLIC ACID [Concomitant]
     Indication: PRODUCT USED FOR UNKNOWN INDICATION
     Dosage: 1 MG, BID
  7. FOLIC ACID [Concomitant]
     Dosage: 2 MG, QD
  8. CALCIUM [Concomitant]
     Indication: PRODUCT USED FOR UNKNOWN INDICATION
     Dosage: UNK
  9. FOSAMAX [Concomitant]
     Indication: OSTEOPOROSIS
     Dosage: 70 MG, QW
  10. IMITREX [Concomitant]
     Indication: MIGRAINE
     Dosage: 15 MG, PRN
  11. VITAMIN D [Concomitant]
     Indication: PRODUCT USED FOR UNKNOWN INDICATION
     Dosage: 1 DF, QD 2000 IU
  12. VITAMIN C [Concomitant]
     Indication: PRODUCT USED FOR UNKNOWN INDICATION
     Dosage: 500 MG, QD
  13. IRON [Concomitant]
     Indication: PRODUCT USED FOR UNKNOWN INDICATION
     Dosage: 325 TABLET, TID
  14. FISH OIL [Concomitant]
     Indication: PRODUCT USED FOR UNKNOWN INDICATION
     Dosage: 1000 MG, QD
  15. VITAMIN B [Concomitant]
     Indication: PRODUCT USED FOR UNKNOWN INDICATION
     Dosage: 1000 MG, QD
  16. FERRITIN [Concomitant]
     Indication: PRODUCT USED FOR UNKNOWN INDICATION
     Dosage: 1 TABLET DF, QD
  17. LEVAQUIN [Concomitant]
     Indication: ANTIBIOTIC PROPHYLAXIS
     Dosage: UNK

REACTIONS (11)
  - Gastroenteritis [Recovered/Resolved]
  - Haemoglobin decreased [Recovered/Resolved]
  - Haemolysis [Recovered/Resolved]
  - Blood pressure decreased [Unknown]
  - Migraine [Recovered/Resolved]
  - Atelectasis [Unknown]
  - Arteriosclerosis [Unknown]
  - Pain in extremity [Unknown]
  - Jaundice [Recovered/Resolved]
  - Nausea [Unknown]
  - Fatigue [Unknown]
